FAERS Safety Report 17104791 (Version 1)
Quarter: 2019Q4

REPORT INFORMATION
  Report Type: Spontaneous
  Country: US (occurrence: US)
  Receive Date: 20191203
  Receipt Date: 20191203
  Transmission Date: 20200122
  Serious: Yes (Other)
  Sender: FDA-Public Use
  Company Number: US-ELI_LILLY_AND_COMPANY-US201911009713

PATIENT
  Age: 51 Year
  Sex: Female
  Weight: 74.83 kg

DRUGS (4)
  1. IBUPROFEN. [Concomitant]
     Active Substance: IBUPROFEN
     Indication: PRODUCT USED FOR UNKNOWN INDICATION
     Dosage: UNK, UNKNOWN
     Route: 065
  2. RELPAX [Concomitant]
     Active Substance: ELETRIPTAN HYDROBROMIDE
     Indication: PRODUCT USED FOR UNKNOWN INDICATION
     Dosage: UNK, UNKNOWN
     Route: 065
  3. EMGALITY [Suspect]
     Active Substance: GALCANEZUMAB-GNLM
     Indication: MIGRAINE
     Dosage: 120 ML, MONTHLY (1/M)
     Route: 065
     Dates: start: 20181207
  4. EXCEDRIN [ACETYLSALICYLIC ACID;CAFFEINE;PARAC [Concomitant]
     Indication: PRODUCT USED FOR UNKNOWN INDICATION
     Dosage: UNK, UNKNOWN
     Route: 065

REACTIONS (27)
  - Musculoskeletal stiffness [Unknown]
  - Chills [Unknown]
  - Myalgia [Unknown]
  - Inflammation [Unknown]
  - Weight increased [Unknown]
  - Thinking abnormal [Unknown]
  - Urinary tract infection [Unknown]
  - Lymph node pain [Unknown]
  - Injection site pain [Unknown]
  - Fatigue [Unknown]
  - Pain in extremity [Unknown]
  - Abdominal pain [Unknown]
  - Hunger [Unknown]
  - Injection site swelling [Unknown]
  - Restless legs syndrome [Unknown]
  - Arthralgia [Unknown]
  - Constipation [Unknown]
  - Headache [Unknown]
  - Migraine [Unknown]
  - Chest pain [Unknown]
  - Heart rate increased [Unknown]
  - Dyspnoea [Unknown]
  - Dry mouth [Unknown]
  - Bone pain [Unknown]
  - Insomnia [Unknown]
  - Influenza like illness [Unknown]
  - Back pain [Unknown]
